FAERS Safety Report 4596276-0 (Version None)
Quarter: 2005Q1

REPORT INFORMATION
  Report Type: 
  Country: None (occurrence: None)
  Receive Date: 20050228
  Receipt Date: 20050216
  Transmission Date: 20050727
  Serious: Yes (Hospitalization, Other)
  Sender: FDA-Public Use
  Company Number: 2005034234

PATIENT
  Sex: Male

DRUGS (3)
  1. NEOSPORIN [Suspect]
     Indication: NAIL OPERATION
     Dosage: TOPICAL
     Route: 061
  2. WARFARIN SODIUM [Concomitant]
  3. LEVOTHYROXINE SODIUM [Concomitant]

REACTIONS (2)
  - CARDIAC OPERATION [None]
  - CEREBRAL THROMBOSIS [None]
